FAERS Safety Report 6993406-8 (Version None)
Quarter: 2010Q3

REPORT INFORMATION
  Report Type: 
  Country: None (occurrence: None)
  Receive Date: 20100917
  Receipt Date: 20100513
  Transmission Date: 20110219
  Serious: No
  Sender: FDA-Public Use
  Company Number: US-ASTRAZENECA-2010SE22077

PATIENT
  Sex: Male

DRUGS (1)
  1. SEROQUEL [Suspect]
     Indication: SCHIZOAFFECTIVE DISORDER BIPOLAR TYPE
     Route: 048

REACTIONS (2)
  - FAECAL INCONTINENCE [None]
  - MUSCLE SPASMS [None]
